FAERS Safety Report 24833785 (Version 8)
Quarter: 2025Q1

REPORT INFORMATION
  Report Type: Report from Study
  Country: ES (occurrence: ES)
  Receive Date: 20250112
  Receipt Date: 20250219
  Transmission Date: 20250408
  Serious: No
  Sender: ABBVIE
  Company Number: ES-ABBVIE-6047833

PATIENT
  Age: 64 Year
  Sex: Female

DRUGS (10)
  1. CARBIDOPA\LEVODOPA [Suspect]
     Active Substance: CARBIDOPA\LEVODOPA
     Indication: Parkinson^s disease
     Route: 058
     Dates: start: 20250205
  2. CARBIDOPA\LEVODOPA [Suspect]
     Active Substance: CARBIDOPA\LEVODOPA
     Route: 058
     Dates: end: 202502
  3. CARBIDOPA\LEVODOPA [Suspect]
     Active Substance: CARBIDOPA\LEVODOPA
     Route: 058
     Dates: start: 20241212
  4. CARBIDOPA\LEVODOPA [Suspect]
     Active Substance: CARBIDOPA\LEVODOPA
     Route: 058
     Dates: start: 20250207, end: 20250212
  5. CARBIDOPA\LEVODOPA [Concomitant]
     Active Substance: CARBIDOPA\LEVODOPA
     Indication: Product used for unknown indication
  6. INBRIJA [Concomitant]
     Active Substance: LEVODOPA
     Indication: Product used for unknown indication
  7. Deprax [Concomitant]
     Indication: Product used for unknown indication
  8. BRINTELLIX [Concomitant]
     Active Substance: VORTIOXETINE HYDROBROMIDE
     Indication: Product used for unknown indication
  9. XADAGO [Concomitant]
     Active Substance: SAFINAMIDE MESYLATE
     Indication: Product used for unknown indication
  10. RIVASTIGMINE [Concomitant]
     Active Substance: RIVASTIGMINE
     Indication: Product used for unknown indication

REACTIONS (17)
  - Nervousness [Not Recovered/Not Resolved]
  - Screaming [Unknown]
  - Tremor [Recovering/Resolving]
  - Unevaluable event [Unknown]
  - Dizziness [Recovered/Resolved]
  - On and off phenomenon [Recovered/Resolved]
  - Freezing phenomenon [Recovering/Resolving]
  - On and off phenomenon [Recovered/Resolved]
  - On and off phenomenon [Recovered/Resolved]
  - Dyskinesia [Recovered/Resolved]
  - Insomnia [Recovering/Resolving]
  - Crying [Recovering/Resolving]
  - Dyskinesia [Recovered/Resolved]
  - Gait inability [Unknown]
  - Nasopharyngitis [Recovering/Resolving]
  - Malabsorption from administration site [Unknown]
  - On and off phenomenon [Not Recovered/Not Resolved]

NARRATIVE: CASE EVENT DATE: 20241201
